FAERS Safety Report 5464645-2 (Version None)
Quarter: 2007Q3

REPORT INFORMATION
  Report Type: 
  Country: None (occurrence: None)
  Receive Date: 20070921
  Receipt Date: 20070917
  Transmission Date: 20080115
  Serious: Yes (Death)
  Sender: FDA-Public Use
  Company Number: US-PFIZER INC-2005010569

PATIENT
  Sex: Male
  Weight: 85.3 kg

DRUGS (5)
  1. ATORVASTATIN CALCIUM [Suspect]
     Indication: CORONARY ARTERY DISEASE
     Dosage: DAILY DOSE:10MG
     Route: 048
     Dates: start: 20040915, end: 20041012
  2. ATORVASTATIN CALCIUM [Suspect]
     Dosage: DAILY DOSE:10MG
     Route: 048
     Dates: start: 20041013, end: 20050110
  3. ZESTORETIC [Concomitant]
     Route: 048
  4. TOPROL-XL [Concomitant]
     Route: 048
  5. ASPIRIN [Concomitant]
     Route: 048

REACTIONS (3)
  - CARDIAC ARREST [None]
  - MYOCARDIAL INFARCTION [None]
  - VENTRICULAR FIBRILLATION [None]
